FAERS Safety Report 8470600-0 (Version None)
Quarter: 2012Q2

REPORT INFORMATION
  Report Type: 
  Country: None (occurrence: None)
  Receive Date: 20120627
  Receipt Date: 20120621
  Transmission Date: 20120825
  Serious: Yes (Hospitalization)
  Sender: FDA-Public Use
  Company Number: PHHO2012US009320

PATIENT
  Sex: Male
  Weight: 111.43 kg

DRUGS (7)
  1. CARVEDILOL [Concomitant]
  2. ALBUTEROL [Concomitant]
  3. FUROSEMIDE [Concomitant]
  4. BUDESONIDE [Concomitant]
  5. ALISKIREN [Suspect]
     Indication: CARDIAC FAILURE ACUTE
     Dosage: 300 MG, UNK
     Route: 048
     Dates: start: 20110928, end: 20120605
  6. LISINOPRIL [Suspect]
  7. METOLAZONE [Suspect]

REACTIONS (1)
  - HYPONATRAEMIA [None]
